FAERS Safety Report 15642055 (Version 2)
Quarter: 2018Q4

REPORT INFORMATION
  Report Type: Spontaneous
  Country: US (occurrence: US)
  Receive Date: 20181121
  Receipt Date: 20181226
  Transmission Date: 20190205
  Serious: No
  Sender: FDA-Public Use
  Company Number: US-ASTRAZENECA-2018SF40690

PATIENT
  Age: 38 Year
  Sex: Male
  Weight: 113.4 kg

DRUGS (3)
  1. JARIDANCE [Concomitant]
     Dosage: UNKNOWN
     Route: 065
  2. FARXIGA [Suspect]
     Active Substance: DAPAGLIFLOZIN PROPANEDIOL
     Indication: TYPE 2 DIABETES MELLITUS
     Route: 048
  3. BYDUREON [Suspect]
     Active Substance: EXENATIDE
     Indication: TYPE 2 DIABETES MELLITUS
     Route: 058
     Dates: start: 201804

REACTIONS (4)
  - Device malfunction [Unknown]
  - Device leakage [Unknown]
  - Injection site pain [Unknown]
  - Insurance issue [Unknown]
